FAERS Safety Report 9281105 (Version 1)
Quarter: 2013Q2

REPORT INFORMATION
  Report Type: Spontaneous
  Country: US (occurrence: US)
  Receive Date: 20130509
  Receipt Date: 20130509
  Transmission Date: 20140414
  Serious: Yes (Hospitalization, Other)
  Sender: FDA-Public Use
  Company Number: US-FRI-1000044873

PATIENT
  Age: 84 Year
  Sex: Female
  Weight: 38.1 kg

DRUGS (2)
  1. CELEXA [Suspect]
     Dates: end: 201304
  2. CHANTIX [Suspect]
     Indication: SMOKING CESSATION THERAPY
     Dosage: 0.5 MG
     Route: 048
     Dates: start: 201304, end: 201304

REACTIONS (6)
  - Serotonin syndrome [Recovered/Resolved]
  - Hyperthermia malignant [Recovered/Resolved]
  - Drug interaction [Recovered/Resolved]
  - Blood potassium decreased [Recovered/Resolved]
  - Blood glucose increased [Recovered/Resolved]
  - Blood chloride increased [Recovered/Resolved]
